FAERS Safety Report 23379506 (Version 3)
Quarter: 2025Q1

REPORT INFORMATION
  Report Type: Report from Study
  Country: CA (occurrence: CA)
  Receive Date: 20240108
  Receipt Date: 20250114
  Transmission Date: 20250409
  Serious: Yes (Other)
  Sender: VERITY PHARMACEUTICALS INC.
  Company Number: CA-VER-202300552

PATIENT
  Age: 67 Year
  Sex: Male

DRUGS (7)
  1. TRELSTAR [Suspect]
     Active Substance: TRIPTORELIN PAMOATE
     Indication: Prostate cancer
     Dosage: (11.25 MG,3 M)??DRUG START: 19-DEC-2023 POWDER FOR PROLONGED-RELEASE SUSPENSION FOR INJECT
     Route: 030
     Dates: end: 20231219
  2. TRELSTAR [Suspect]
     Active Substance: TRIPTORELIN PAMOATE
     Indication: Prostate cancer
     Dosage: (11.25 MG,3 M)??START DATE: 19-SEP-2023 POWDER FOR PROLONGED-RELEASE SUSPENSION FOR INJECT
     Route: 030
     Dates: end: 20230919
  3. TRELSTAR [Suspect]
     Active Substance: TRIPTORELIN PAMOATE
     Indication: Prostate cancer
     Dosage: (11.25 MILLIGRAM(S), 1 IN 3 MONTH); POWDER FOR PROLONGED-RELEASE SUSPENSION FOR INJECT
     Route: 030
     Dates: end: 20240618
  4. TRELSTAR [Suspect]
     Active Substance: TRIPTORELIN PAMOATE
     Indication: Prostate cancer
     Dosage: START DATE: 17-DEC-2024??POWDER FOR PROLONGED-RELEASE SUSPENSION FOR INJECT
     Route: 030
     Dates: end: 20241217
  5. TRELSTAR [Suspect]
     Active Substance: TRIPTORELIN PAMOATE
     Indication: Prostate cancer
     Dosage: START DATE: 17-SEP-2024??POWDER FOR PROLONGED-RELEASE SUSPENSION FOR INJECT
     Route: 030
     Dates: end: 20240917
  6. TRELSTAR [Suspect]
     Active Substance: TRIPTORELIN PAMOATE
     Indication: Prostate cancer
     Dosage: START DATE: 19-MAR-2024; (11.25 MILLIGRAM(S), 1 IN 3 MONTH) POWDER FOR PROLONGED-RELEASE SUSPENSION
     Route: 030
     Dates: end: 20240319
  7. TRELSTAR [Suspect]
     Active Substance: TRIPTORELIN PAMOATE
     Indication: Prostate cancer
     Dosage: ONCE / 3 MONTHS. DRUG START: 21-JUN-2023; POWDER FOR PROLONGED-RELEASE SUSPENSION FOR INJECT
     Route: 030
     Dates: end: 20230621

REACTIONS (6)
  - Rib fracture [Recovering/Resolving]
  - Fall [Recovering/Resolving]
  - Heart rate increased [Unknown]
  - Clavicle fracture [Recovering/Resolving]
  - Oxygen saturation decreased [Unknown]
  - Scapula fracture [Recovering/Resolving]

NARRATIVE: CASE EVENT DATE: 20230919
